FAERS Safety Report 5847415-2 (Version None)
Quarter: 2008Q3

REPORT INFORMATION
  Report Type: 
  Country: None (occurrence: None)
  Receive Date: 20080813
  Receipt Date: 20080729
  Transmission Date: 20090109
  Serious: Yes (Hospitalization)
  Sender: FDA-Public Use
  Company Number: DSA_32220_2008

PATIENT
  Sex: Female

DRUGS (3)
  1. LORAZEPAM [Suspect]
     Dosage: NOT THE PRESCRIBED AMOUNT, ORAL
     Route: 048
     Dates: start: 20080729, end: 20080729
  2. AMITRIPTLINE HYDROCHLORIDE TAB [Suspect]
     Dosage: 30 DF 1X NOT THE PRESCRIBED AMOUNT ORAL
     Route: 048
     Dates: start: 20080729, end: 20080729
  3. ALCOHOL (ALCOHOL ETHANOL) [Suspect]
     Dosage: ORAL
     Route: 048
     Dates: start: 20080729, end: 20080729

REACTIONS (4)
  - MULTIPLE DRUG OVERDOSE INTENTIONAL [None]
  - MYDRIASIS [None]
  - SOMNOLENCE [None]
  - SUICIDE ATTEMPT [None]
